FAERS Safety Report 6221669-5 (Version None)
Quarter: 2009Q2

REPORT INFORMATION
  Report Type: 
  Country: None (occurrence: None)
  Receive Date: 20090610
  Receipt Date: 20090529
  Transmission Date: 20091009
  Serious: Yes (Hospitalization, Other)
  Sender: FDA-Public Use
  Company Number: PHHY2009US14643

PATIENT
  Sex: Male

DRUGS (8)
  1. BACLOFEN [Suspect]
     Indication: TRIGEMINAL NEURALGIA
     Dosage: UNK
     Dates: start: 19980101
  2. TRILEPTAL [Suspect]
     Indication: TRIGEMINAL NEURALGIA
     Dosage: UNK
     Dates: start: 19980101
  3. BETASERON [Suspect]
     Indication: RELAPSING-REMITTING MULTIPLE SCLEROSIS
     Dosage: 8 MIU EVERY OTHER DAY
     Route: 058
     Dates: start: 19931217
  4. BETASERON [Suspect]
     Dosage: UNK
     Route: 058
     Dates: start: 20090520
  5. CORTICOSTEROID NOS [Concomitant]
     Indication: OPTIC NEURITIS
     Dosage: UNK
     Route: 042
     Dates: start: 19840101
  6. SEROQUEL [Concomitant]
     Indication: DEPRESSION
     Dosage: UNK
  7. CLONAZEPAM [Concomitant]
     Dosage: UNK
  8. NEURONTIN [Concomitant]
     Indication: TRIGEMINAL NEURALGIA
     Dosage: UNK

REACTIONS (13)
  - ERYTHEMA [None]
  - FACIAL PAIN [None]
  - HYPERSENSITIVITY [None]
  - INJECTION SITE CELLULITIS [None]
  - INJECTION SITE ERYTHEMA [None]
  - INJECTION SITE PAIN [None]
  - INJECTION SITE SWELLING [None]
  - INJECTION SITE WARMTH [None]
  - PERIPHERAL NERVE DECOMPRESSION [None]
  - PSYCHOTIC DISORDER [None]
  - TRIGEMINAL NERVE ABLATION [None]
  - TRIGEMINAL NEURALGIA [None]
  - WRONG TECHNIQUE IN DRUG USAGE PROCESS [None]
